FAERS Safety Report 8177021-9 (Version None)
Quarter: 2012Q1

REPORT INFORMATION
  Report Type: 
  Country: None (occurrence: None)
  Receive Date: 20120301
  Receipt Date: 20120221
  Transmission Date: 20120608
  Serious: No
  Sender: FDA-Public Use
  Company Number: US-BAYER-2012-017949

PATIENT
  Age: 79 Year
  Sex: Female
  Weight: 75 kg

DRUGS (4)
  1. ALEVE (CAPLET) [Suspect]
     Route: 048
  2. ASPIRIN [Suspect]
     Indication: ARTHRITIS
     Dosage: 2 TABLETS EVERY 6 HOURS - 50 COUNT
     Route: 048
     Dates: start: 20110201
  3. HERBALIFE PRODUCTS [Concomitant]
  4. VITAMIN TAB [Concomitant]

REACTIONS (4)
  - PARAESTHESIA [None]
  - DYSPEPSIA [None]
  - RASH [None]
  - CARDIAC DISORDER [None]
